FAERS Safety Report 20566126 (Version 1)
Quarter: 2022Q1

REPORT INFORMATION
  Report Type: Report from Study
  Country: US (occurrence: US)
  Receive Date: 20220308
  Receipt Date: 20220308
  Transmission Date: 20220423
  Serious: Yes (Hospitalization)
  Sender: FDA-Public Use
  Company Number: US-ORPHANEU-2021003019

PATIENT

DRUGS (4)
  1. CARBAGLU [Suspect]
     Active Substance: CARGLUMIC ACID
     Indication: Hyperammonaemia
     Dosage: 200 MILLIGRAM, TID
     Dates: start: 20210629
  2. CARBAGLU [Suspect]
     Active Substance: CARGLUMIC ACID
     Dosage: ONE 200 MG TABLET DISSOLVED IN 2.5 ML WATER TO BE GIVEN EVERY EIGHT HOURS AT 9 AM, 5 PM, AND 1 AM
     Dates: start: 20210713, end: 202107
  3. CYCLINEX 1 [Concomitant]
     Indication: Product used for unknown indication
     Dosage: UNK
     Dates: start: 2021
  4. BIOTIN [Concomitant]
     Active Substance: BIOTIN
     Indication: Product used for unknown indication
     Dosage: UNK
     Dates: start: 2021

REACTIONS (4)
  - Movement disorder [Unknown]
  - Hyperammonaemia [Recovered/Resolved]
  - Abnormal behaviour [Unknown]
  - Infantile spitting up [Unknown]

NARRATIVE: CASE EVENT DATE: 20210101
